FAERS Safety Report 7493292-6 (Version None)
Quarter: 2011Q2

REPORT INFORMATION
  Report Type: 
  Country: None (occurrence: None)
  Receive Date: 20110513
  Receipt Date: 20110428
  Transmission Date: 20111010
  Serious: Yes (Hospitalization)
  Sender: FDA-Public Use
  Company Number: 025872

PATIENT
  Sex: Female

DRUGS (2)
  1. CIMZIA [Suspect]
     Indication: SPONDYLITIS
     Dosage: SUBCUTANEOUS, SUBCUTANEOUS
     Route: 058
     Dates: start: 20110203
  2. CIMZIA [Suspect]
     Indication: SPONDYLITIS
     Dosage: SUBCUTANEOUS, SUBCUTANEOUS
     Route: 058
     Dates: end: 20110120

REACTIONS (1)
  - BRONCHITIS [None]
